FAERS Safety Report 5341946-X (Version None)
Quarter: 2007Q2

REPORT INFORMATION
  Report Type: 
  Country: None (occurrence: None)
  Receive Date: 20070409
  Receipt Date: 20051001
  Transmission Date: 20071010
  Serious: Yes (Disabling)
  Sender: FDA-Public Use
  Company Number: GXBR2005US01837

PATIENT
  Age: 67 Year
  Sex: Male

DRUGS (9)
  1. AMIODARONE HCL [Suspect]
     Indication: ATRIAL FIBRILLATION
     Dosage: SEE IMAGE
     Route: 048
     Dates: start: 20021122, end: 20021129
  2. AMIODARONE HCL [Suspect]
     Indication: ATRIAL FIBRILLATION
     Dosage: SEE IMAGE
     Route: 048
     Dates: end: 20030519
  3. AMIODARONE HCL [Suspect]
     Indication: ATRIAL FIBRILLATION
     Dosage: SEE IMAGE
     Route: 048
     Dates: start: 20021129
  4. TOPROL-XL [Concomitant]
  5. FUROSEMIDE [Concomitant]
  6. QUINAPRIL HCL [Concomitant]
  7. GLIPIZIDE [Concomitant]
  8. COUMADIN [Concomitant]
  9. TRAMADOL HCL [Concomitant]

REACTIONS (4)
  - BLINDNESS [None]
  - CORNEAL DEPOSITS [None]
  - OPTIC ATROPHY [None]
  - OPTIC NEUROPATHY [None]
